FAERS Safety Report 19591271 (Version 6)
Quarter: 2021Q4

REPORT INFORMATION
  Report Type: Spontaneous
  Country: ZA (occurrence: ZA)
  Receive Date: 20210721
  Receipt Date: 20211104
  Transmission Date: 20220303
  Serious: Yes (Hospitalization, Other)
  Sender: FDA-Public Use
  Company Number: ZA-LUNDBECK-DKLU3034947

PATIENT
  Age: 42 Year

DRUGS (3)
  1. ABILIFY [Suspect]
     Active Substance: ARIPIPRAZOLE
     Indication: Product used for unknown indication
     Dosage: 30 MG
     Route: 065
  2. ABILIFY [Suspect]
     Active Substance: ARIPIPRAZOLE
     Dosage: OVERDOSE: 40MG OF ABILIFY
     Route: 065
  3. ARIPIPRAZOLE [Concomitant]
     Active Substance: ARIPIPRAZOLE
     Indication: Product used for unknown indication
     Dosage: 20 MG
     Route: 065

REACTIONS (34)
  - Hospitalisation [Unknown]
  - Suicidal ideation [Unknown]
  - Hyperventilation [Unknown]
  - Feeling of despair [Unknown]
  - Crying [Unknown]
  - COVID-19 [Unknown]
  - Heart rate irregular [Unknown]
  - Emotional poverty [Unknown]
  - Visual impairment [Unknown]
  - Mental disorder [Unknown]
  - Mood swings [Unknown]
  - Thinking abnormal [Unknown]
  - Feeling abnormal [Unknown]
  - Affect lability [Unknown]
  - Panic attack [Unknown]
  - Blood pressure increased [Recovered/Resolved]
  - Anger [Unknown]
  - Hypersomnia [Unknown]
  - Memory impairment [Unknown]
  - Drooling [Unknown]
  - Muscular weakness [Unknown]
  - Pyrexia [Unknown]
  - Rash [Unknown]
  - Anxiety [Unknown]
  - Fatigue [Unknown]
  - Insomnia [Unknown]
  - Speech disorder [Unknown]
  - Weight increased [Unknown]
  - Dysphagia [Unknown]
  - Vomiting [Unknown]
  - Chest pain [Recovered/Resolved]
  - Product dose omission issue [Unknown]
  - Overdose [Unknown]
  - Treatment noncompliance [Unknown]
